FAERS Safety Report 5884921-9 (Version None)
Quarter: 2008Q3

REPORT INFORMATION
  Report Type: 
  Country: None (occurrence: None)
  Receive Date: 20080916
  Receipt Date: 20080910
  Transmission Date: 20090109
  Serious: Yes (Other)
  Sender: FDA-Public Use
  Company Number: A0746791A

PATIENT
  Age: 66 Year
  Sex: Male

DRUGS (3)
  1. VERAMYST [Suspect]
     Dosage: 2SPR PER DAY
     Route: 045
     Dates: start: 20080101, end: 20080101
  2. CLARINEX [Concomitant]
  3. ADVAIR DISKUS 100/50 [Concomitant]
     Route: 055

REACTIONS (1)
  - ANOSMIA [None]
